FAERS Safety Report 9238274 (Version 1)
Quarter: 2013Q2

REPORT INFORMATION
  Report Type: Spontaneous
  Country: US (occurrence: US)
  Receive Date: 20130418
  Receipt Date: 20130418
  Transmission Date: 20140414
  Serious: No
  Sender: FDA-Public Use
  Company Number: US-009507513-1304USA007816

PATIENT
  Sex: Female

DRUGS (1)
  1. DULERA [Suspect]
     Indication: DYSPNOEA
     Dosage: 2 PUFFS EVERY 12 HOURS, ORAL INHALATION
     Dates: start: 20130412

REACTIONS (3)
  - Dyspnoea [Not Recovered/Not Resolved]
  - Drug dose omission [Unknown]
  - Product quality issue [Unknown]
